FAERS Safety Report 16124913 (Version 1)
Quarter: 2019Q1

REPORT INFORMATION
  Report Type: Spontaneous
  Country: CA (occurrence: CA)
  Receive Date: 20190327
  Receipt Date: 20190327
  Transmission Date: 20190418
  Serious: Yes (Other)
  Sender: FDA-Public Use
  Company Number: CA-BRISTOL-MYERS SQUIBB COMPANY-BMS-2019-026867

PATIENT
  Age: 77 Year
  Sex: Female
  Weight: 109 kg

DRUGS (2)
  1. ORENCIA [Suspect]
     Active Substance: ABATACEPT
     Indication: RHEUMATOID ARTHRITIS
     Dosage: 125 MILLIGRAM, QWK
     Route: 058
  2. ORENCIA [Suspect]
     Active Substance: ABATACEPT
     Indication: PRODUCT USED FOR UNKNOWN INDICATION
     Dosage: 750 MILLIGRAM, QWK
     Route: 042

REACTIONS (8)
  - Choking [Unknown]
  - Off label use [Unknown]
  - Blood pressure increased [Unknown]
  - Cough [Unknown]
  - Ocular hyperaemia [Unknown]
  - Chills [Unknown]
  - Dyspnoea [Unknown]
  - Pyrexia [Unknown]
